FAERS Safety Report 5518720-4 (Version None)
Quarter: 2007Q4

REPORT INFORMATION
  Report Type: 
  Country: None (occurrence: None)
  Receive Date: 20071115
  Receipt Date: 20071105
  Transmission Date: 20080405
  Serious: Yes (Other)
  Sender: FDA-Public Use
  Company Number: US-ELI_LILLY_AND_COMPANY-US200710005117

PATIENT
  Sex: Female
  Weight: 53.514 kg

DRUGS (7)
  1. FORTEO [Suspect]
     Indication: OSTEOPOROSIS
     Dosage: 20 UG, DAILY (1/D)
     Dates: start: 20071019, end: 20071019
  2. EVISTA [Suspect]
     Dates: start: 20020101, end: 20071018
  3. EVISTA [Suspect]
     Dates: start: 20071023
  4. PREVACID [Concomitant]
  5. CALCIUM W/VITAMIN D NOS [Concomitant]
  6. XALATAN [Concomitant]
  7. COSOPT [Concomitant]

REACTIONS (7)
  - BODY HEIGHT DECREASED [None]
  - BONE DENSITY DECREASED [None]
  - DISCOMFORT [None]
  - DYSPNOEA [None]
  - HEART RATE IRREGULAR [None]
  - MUSCLE SPASMS [None]
  - SPINAL FRACTURE [None]
